FAERS Safety Report 8377766-1 (Version None)
Quarter: 2012Q2

REPORT INFORMATION
  Report Type: 
  Country: None (occurrence: None)
  Receive Date: 20120522
  Receipt Date: 20120510
  Transmission Date: 20120825
  Serious: Yes (Other)
  Sender: FDA-Public Use
  Company Number: CH-JNJFOC-20120511160

PATIENT
  Sex: Male

DRUGS (8)
  1. NOZINAN [Concomitant]
     Route: 065
  2. CLOZAPINE [Concomitant]
     Route: 065
  3. TRANXILIUM [Concomitant]
     Route: 065
  4. TRANSIPEG [Concomitant]
     Route: 065
  5. ENTUMIN [Concomitant]
     Route: 065
  6. HALDOL [Suspect]
     Indication: SCHIZOPHRENIA
     Route: 065
     Dates: start: 20120509
  7. MIDAZOLAM HCL [Concomitant]
     Route: 065
  8. ZYPREXA [Concomitant]
     Route: 065

REACTIONS (3)
  - PYREXIA [None]
  - ANGER [None]
  - AGGRESSION [None]
